FAERS Safety Report 7279133-0 (Version None)
Quarter: 2011Q1

REPORT INFORMATION
  Report Type: 
  Country: None (occurrence: None)
  Receive Date: 20110207
  Receipt Date: 20110201
  Transmission Date: 20110831
  Serious: Yes (Hospitalization)
  Sender: FDA-Public Use
  Company Number: NL-MEDIMMUNE-MEDI-0012262

PATIENT
  Sex: Male
  Weight: 5.82 kg

DRUGS (2)
  1. SYNAGIS [Suspect]
     Route: 030
     Dates: start: 20110111, end: 20110111
  2. SYNAGIS [Suspect]
     Route: 030
     Dates: start: 20101009, end: 20101209

REACTIONS (4)
  - DECREASED APPETITE [None]
  - NASOPHARYNGITIS [None]
  - FLUID INTAKE REDUCED [None]
  - VOMITING [None]
